FAERS Safety Report 14012486 (Version 1)
Quarter: 2017Q3

REPORT INFORMATION
  Report Type: Spontaneous
  Country: US (occurrence: US)
  Receive Date: 20170926
  Receipt Date: 20170926
  Transmission Date: 20171128
  Serious: Yes (Hospitalization, Other)
  Sender: FDA-Public Use
  Company Number: US-PFIZER INC-2017409634

PATIENT
  Age: 6 Decade
  Sex: Male
  Weight: 90.26 kg

DRUGS (2)
  1. XANAX [Suspect]
     Active Substance: ALPRAZOLAM
     Indication: ANXIETY
     Dosage: 1 MG, 3X/DAY
     Route: 048
     Dates: start: 1991
  2. HYDROCODONE [Suspect]
     Active Substance: HYDROCODONE
     Indication: ANXIETY
     Dosage: 5-325MG, (1-1.5 TABLETS) DAILY
     Route: 048

REACTIONS (10)
  - Withdrawal syndrome [Unknown]
  - Somnolence [Unknown]
  - Haemorrhage [Recovered/Resolved]
  - Abnormal behaviour [Unknown]
  - Headache [Unknown]
  - Blood iron decreased [Unknown]
  - Intestinal perforation [Recovered/Resolved]
  - Nervousness [Unknown]
  - Drug ineffective [Unknown]
  - Myocardial infarction [Recovered/Resolved]

NARRATIVE: CASE EVENT DATE: 201107
